FAERS Safety Report 17877273 (Version 1)
Quarter: 2020Q2

REPORT INFORMATION
  Report Type: Report from Study
  Country: JP (occurrence: JP)
  Receive Date: 20200609
  Receipt Date: 20200609
  Transmission Date: 20200714
  Serious: Yes (Hospitalization)
  Sender: FDA-Public Use
  Company Number: JP-ASTRAZENECA-2020SE73055

PATIENT
  Age: 17986 Day
  Sex: Female

DRUGS (14)
  1. DURVALUMAB. [Suspect]
     Active Substance: DURVALUMAB
     Indication: CERVIX CARCINOMA
     Route: 042
     Dates: start: 20200401, end: 20200401
  2. DURVALUMAB. [Suspect]
     Active Substance: DURVALUMAB
     Indication: CERVIX CARCINOMA
     Route: 042
     Dates: start: 20200428, end: 20200428
  3. LOXOPROFEN SODIUM HYDRATE [Concomitant]
     Active Substance: LOXOPROFEN SODIUM DIHYDRATE
     Indication: PERIODONTITIS
     Dosage: 60.0MG AS REQUIRED
     Route: 055
     Dates: start: 20200303
  4. LOPERAMIDE HYDROCHLORIDE. [Concomitant]
     Active Substance: LOPERAMIDE HYDROCHLORIDE
     Indication: DIARRHOEA
     Dosage: 1.0MG AS REQUIRED
     Route: 048
     Dates: start: 20200407
  5. DURVALUMAB. [Suspect]
     Active Substance: DURVALUMAB
     Indication: CERVIX CARCINOMA
     Route: 042
     Dates: start: 20200304, end: 20200304
  6. CISPLATIN. [Suspect]
     Active Substance: CISPLATIN
     Indication: CERVIX CARCINOMA
     Route: 065
     Dates: start: 20200304, end: 20200304
  7. CISPLATIN. [Suspect]
     Active Substance: CISPLATIN
     Indication: CERVIX CARCINOMA
     Route: 065
     Dates: start: 20200311, end: 20200311
  8. BRACHYTHERAPY [Suspect]
     Active Substance: RADIATION THERAPY
     Indication: CERVIX CARCINOMA
     Route: 065
  9. LOXOPROFEN SODIUM HYDRATE [Concomitant]
     Active Substance: LOXOPROFEN SODIUM DIHYDRATE
     Indication: PERIODONTITIS
     Dosage: 60.0MG AS REQUIRED
     Route: 055
     Dates: start: 20200303
  10. EBRT (RADIATION) [Suspect]
     Active Substance: RADIATION THERAPY
     Indication: CERVIX CARCINOMA
     Route: 065
  11. CISPLATIN. [Suspect]
     Active Substance: CISPLATIN
     Indication: CERVIX CARCINOMA
     Route: 065
     Dates: start: 20200318, end: 20200318
  12. CISPLATIN. [Suspect]
     Active Substance: CISPLATIN
     Indication: CERVIX CARCINOMA
     Route: 065
     Dates: start: 20200325, end: 20200325
  13. CISPLATIN. [Suspect]
     Active Substance: CISPLATIN
     Indication: CERVIX CARCINOMA
     Route: 065
     Dates: start: 20200401, end: 20200401
  14. BUDESONIDE FORMOTEROL FUMERATE [Concomitant]
     Indication: ASTHMA
     Dosage: 164.5UG AS REQUIRED
     Route: 055

REACTIONS (1)
  - Immune-mediated enterocolitis [Not Recovered/Not Resolved]

NARRATIVE: CASE EVENT DATE: 20200529
